FAERS Safety Report 4299627-X (Version None)
Quarter: 2004Q1

REPORT INFORMATION
  Report Type: 
  Country: None (occurrence: None)
  Receive Date: 20040217
  Receipt Date: 20040205
  Transmission Date: 20041129
  Serious: Yes (Other)
  Sender: FDA-Public Use
  Company Number: 2004004075

PATIENT
  Age: 72 Year
  Sex: Female
  Weight: 78.4723 kg

DRUGS (10)
  1. ACCUPRIL [Suspect]
     Indication: HYPERTENSION
     Dosage: 10 MG, ORAL
     Route: 048
     Dates: start: 20000101, end: 20031231
  2. ZITHROMAX [Suspect]
     Indication: BACTERIAL INFECTION
     Dosage: (DAILY), ORAL
     Route: 048
     Dates: start: 20040113, end: 20040101
  3. DEXAMETHASONE [Suspect]
     Indication: ILL-DEFINED DISORDER
  4. INFLUENZA VACCINE (INFLUENZA VACCINE) [Suspect]
     Indication: ILL-DEFINED DISORDER
  5. ANTINEOPLASTIC AGENTS [Suspect]
     Indication: COLON CANCER
     Dates: start: 20031217
  6. LEVOTHYROXINE SODIUM [Concomitant]
  7. DYAZIDE (HYDROCHLOROTHIZIDE, TRIAMTERENE) [Concomitant]
  8. CALCIUM D3 ^STADA^ (COLECALCIFEROL, CALCIUM) [Concomitant]
  9. CALCIUM LACTATE (CALCIUM LACTATE) [Concomitant]
  10. ACETYLSALICYLIC ACID SRT [Concomitant]

REACTIONS (8)
  - ABDOMINAL PAIN UPPER [None]
  - ANGIONEUROTIC OEDEMA [None]
  - ARTERIAL THROMBOSIS [None]
  - BACTERIAL INFECTION [None]
  - COLON CANCER [None]
  - GOUT [None]
  - HEART RATE INCREASED [None]
  - MUCOSAL DISCOLOURATION [None]
